FAERS Safety Report 5129695-4 (Version None)
Quarter: 2006Q4

REPORT INFORMATION
  Report Type: 
  Country: None (occurrence: None)
  Receive Date: 20061018
  Receipt Date: 20061012
  Transmission Date: 20070319
  Serious: Yes (Other)
  Sender: FDA-Public Use
  Company Number: FR-GLAXOSMITHKLINE-B0442036A

PATIENT
  Age: 66 Year
  Sex: Female

DRUGS (2)
  1. ARIXTRA [Suspect]
     Dosage: 2.5MG PER DAY
     Route: 058
  2. LORAZEPAM [Concomitant]

REACTIONS (2)
  - ANAEMIA [None]
  - MALAISE [None]
